FAERS Safety Report 4819167-6 (Version None)
Quarter: 2005Q4

REPORT INFORMATION
  Report Type: 
  Country: None (occurrence: None)
  Receive Date: 20051012
  Receipt Date: 20050906
  Transmission Date: 20060501
  Serious: No
  Sender: FDA-Public Use
  Company Number: A03200502803

PATIENT
  Age: 66 Year
  Sex: Male
  Weight: 96.6162 kg

DRUGS (3)
  1. UROXATRAL [Suspect]
     Indication: PROSTATIC DISORDER
     Dosage: ORAL
     Route: 048
     Dates: start: 20050801, end: 20050831
  2. COUMADIN [Suspect]
     Indication: ATRIAL FIBRILLATION
     Dosage: ORAL
     Route: 048
     Dates: start: 19910101
  3. COUMADIN ^ENDO^ - WARFARIN SODIUM - TABLET - 2.5 MG [Suspect]
     Indication: ATRIAL FIBRILLATION
     Dosage: ORAL
     Route: 048
     Dates: end: 20050831

REACTIONS (4)
  - BLOOD PRESSURE DECREASED [None]
  - DIZZINESS [None]
  - POST PROCEDURAL HAEMORRHAGE [None]
  - PROTHROMBIN TIME ABNORMAL [None]
